FAERS Safety Report 9157106 (Version 1)
Quarter: 2013Q1

REPORT INFORMATION
  Report Type: Spontaneous
  Country: US (occurrence: None)
  Receive Date: 20130308
  Receipt Date: 20130308
  Transmission Date: 20140127
  Serious: Yes (Hospitalization, Disabling)
  Sender: FDA-Public Use
  Company Number: None

PATIENT
  Age: 36 Year
  Sex: Male
  Weight: 81.65 kg

DRUGS (1)
  1. SMZ/TMP DS 800-160 TAB (GENERIC) [Suspect]
     Indication: BACTERIAL PROSTATITIS
     Dosage: 1 TAB 2X DAY BA ; ONLY TOOK 1 PILL THE 2ND TIME AROUND!
     Dates: start: 20130216

REACTIONS (8)
  - Abdominal pain upper [None]
  - Constipation [None]
  - Headache [None]
  - Blister [None]
  - Thinking abnormal [None]
  - Depression [None]
  - Anxiety [None]
  - Suicidal ideation [None]
